FAERS Safety Report 19421269 (Version 1)
Quarter: 2021Q2

REPORT INFORMATION
  Report Type: Spontaneous
  Country: CA (occurrence: CA)
  Receive Date: 20210616
  Receipt Date: 20210616
  Transmission Date: 20210717
  Serious: Yes (Other)
  Sender: FDA-Public Use
  Company Number: CA-ROCHE-2847434

PATIENT
  Age: 68 Year
  Sex: Female

DRUGS (2)
  1. RITUXIMAB. [Suspect]
     Active Substance: RITUXIMAB
     Route: 042
  2. RITUXIMAB. [Suspect]
     Active Substance: RITUXIMAB
     Indication: PEMPHIGOID
     Dosage: CONCENTRATE FOR SOLUTION FOR INFUSION
     Route: 042

REACTIONS (4)
  - Cardiac failure chronic [Unknown]
  - Lymphadenopathy [Unknown]
  - Malaise [Unknown]
  - Product use issue [Unknown]
